FAERS Safety Report 25012265 (Version 2)
Quarter: 2025Q2

REPORT INFORMATION
  Report Type: Spontaneous
  Country: JP (occurrence: JP)
  Receive Date: 20250226
  Receipt Date: 20250401
  Transmission Date: 20250716
  Serious: No
  Sender: ALEXION PHARMACEUTICALS
  Company Number: JP-ASTRAZENECA-250017258_013820_P_1

PATIENT
  Age: 70 Year

DRUGS (2)
  1. ACALABRUTINIB [Suspect]
     Active Substance: ACALABRUTINIB
     Indication: Chronic lymphocytic leukaemia
  2. GAZYVA [Concomitant]
     Active Substance: OBINUTUZUMAB
     Route: 065

REACTIONS (2)
  - Fibrin D dimer increased [Recovered/Resolved]
  - Oedema peripheral [Not Recovered/Not Resolved]
